FAERS Safety Report 18861458 (Version 1)
Quarter: 2021Q1

REPORT INFORMATION
  Report Type: Spontaneous
  Country: JP (occurrence: JP)
  Receive Date: 20210209
  Receipt Date: 20210209
  Transmission Date: 20210420
  Serious: Yes (Other)
  Sender: FDA-Public Use
  Company Number: JP-SA-2021SA033184

PATIENT
  Age: 75 Year
  Sex: Male

DRUGS (1)
  1. MABCAMPATH [Suspect]
     Active Substance: ALEMTUZUMAB
     Indication: T-CELL PROLYMPHOCYTIC LEUKAEMIA
     Dosage: DAILY DOSE: 30 (UNIT, UNSPECIFIED)
     Route: 041
     Dates: start: 20210118

REACTIONS (1)
  - Conjunctival haemorrhage [Unknown]

NARRATIVE: CASE EVENT DATE: 20210201
